FAERS Safety Report 24073363 (Version 1)
Quarter: 2024Q3

REPORT INFORMATION
  Report Type: Spontaneous
  Country: GB (occurrence: GB)
  Receive Date: 20240710
  Receipt Date: 20240710
  Transmission Date: 20241016
  Serious: Yes (Other)
  Sender: HIKMA
  Company Number: None

PATIENT
  Age: 21 Year
  Sex: Female
  Weight: 52 kg

DRUGS (4)
  1. CIPROFLOXACIN [Suspect]
     Active Substance: CIPROFLOXACIN
     Indication: Gastroenteritis bacterial
     Dosage: UNKNOWN, BID
     Route: 042
     Dates: start: 20240601, end: 20240603
  2. CIPROFLOXACIN [Suspect]
     Active Substance: CIPROFLOXACIN
     Indication: Gastroenteritis bacterial
     Dosage: UNKNOWN
     Route: 048
  3. MESALAMINE [Concomitant]
     Active Substance: MESALAMINE
     Indication: Colitis
     Dosage: UNKNOWN
     Route: 065
     Dates: start: 20230901
  4. PENTASA [Concomitant]
     Active Substance: MESALAMINE
     Indication: Colitis
     Dosage: UNKNOWN
     Route: 065
     Dates: start: 20240515, end: 20240531

REACTIONS (12)
  - Psychotic disorder [Recovered/Resolved]
  - Heart rate increased [Recovered/Resolved]
  - Disorientation [Recovered/Resolved]
  - Dizziness [Recovered/Resolved]
  - Dissociation [Recovered/Resolved]
  - Hallucinations, mixed [Recovered/Resolved]
  - Tachyphrenia [Recovered/Resolved]
  - Thinking abnormal [Recovered/Resolved]
  - Condition aggravated [Recovered/Resolved]
  - Autism spectrum disorder [Recovered/Resolved]
  - Anxiety [Recovered/Resolved]
  - Medication error [Unknown]

NARRATIVE: CASE EVENT DATE: 20240603
